FAERS Safety Report 7278071-7 (Version None)
Quarter: 2011Q1

REPORT INFORMATION
  Report Type: 
  Country: None (occurrence: None)
  Receive Date: 20110207
  Receipt Date: 20110131
  Transmission Date: 20110831
  Serious: Yes (Hospitalization)
  Sender: FDA-Public Use
  Company Number: DE-EISAI INC-E2020-06845-CLI-DE

PATIENT
  Sex: Male

DRUGS (1)
  1. ARICEPT [Suspect]
     Dosage: UNKNOWN
     Route: 048
     Dates: end: 20100101

REACTIONS (1)
  - ELECTROCARDIOGRAM QT PROLONGED [None]
